FAERS Safety Report 20455803 (Version 1)
Quarter: 2022Q1

REPORT INFORMATION
  Report Type: Spontaneous
  Country: US (occurrence: None)
  Receive Date: 20220210
  Receipt Date: 20220210
  Transmission Date: 20220423
  Serious: No
  Sender: FDA-Public Use
  Company Number: None

PATIENT
  Age: 87 Year
  Sex: Male
  Weight: 159 kg

DRUGS (1)
  1. SULFAMETHOXAZOLE\TRIMETHOPRIM [Suspect]
     Active Substance: SULFAMETHOXAZOLE\TRIMETHOPRIM
     Indication: Urinary tract infection
     Dosage: OTHER QUANTITY : 800/160 MG;?FREQUENCY : TWICE A DAY;?
     Route: 048
     Dates: start: 20210820, end: 20210901

REACTIONS (2)
  - Erythema multiforme [None]
  - Face oedema [None]

NARRATIVE: CASE EVENT DATE: 20211118
